FAERS Safety Report 23942735 (Version 1)
Quarter: 2024Q2

REPORT INFORMATION
  Report Type: Spontaneous
  Country: CZ (occurrence: CZ)
  Receive Date: 20240605
  Receipt Date: 20240605
  Transmission Date: 20240716
  Serious: Yes (Hospitalization, Other)
  Sender: FDA-Public Use
  Company Number: CZ-AMGEN-CZESP2024108399

PATIENT
  Age: 80 Year
  Sex: Female
  Weight: 54 kg

DRUGS (4)
  1. LUMAKRAS [Suspect]
     Active Substance: SOTORASIB
     Indication: Product used for unknown indication
     Dosage: 960 MILLIGRAM (8 TABLETS OF 120 MG)
     Route: 065
     Dates: start: 20231207
  2. LUMAKRAS [Suspect]
     Active Substance: SOTORASIB
     Dosage: UNK
     Route: 065
  3. LUMAKRAS [Suspect]
     Active Substance: SOTORASIB
     Dosage: 480 MILLIGRAM (4 TABLETS OF 120 MG), DOSE REDUCTION
     Route: 065
     Dates: start: 20240122, end: 2024
  4. LUMAKRAS [Suspect]
     Active Substance: SOTORASIB
     Dosage: 240 MILLIGRAM (2 TABLETS OF 120 MG), DOSE REDUCTION
     Route: 065
     Dates: start: 20240201, end: 202405

REACTIONS (3)
  - Cholangitis [Unknown]
  - Carcinoembryonic antigen increased [Unknown]
  - Drug intolerance [Unknown]

NARRATIVE: CASE EVENT DATE: 20240501
